FAERS Safety Report 22359329 (Version 1)
Quarter: 2023Q2

REPORT INFORMATION
  Report Type: Spontaneous
  Country: IT (occurrence: IT)
  Receive Date: 20230524
  Receipt Date: 20230524
  Transmission Date: 20230722
  Serious: Yes (Other)
  Sender: FDA-Public Use
  Company Number: IT-AUROBINDO-AUR-APL-2023-038161

PATIENT
  Age: 57 Year
  Sex: Female

DRUGS (6)
  1. OXALIPLATIN [Suspect]
     Active Substance: OXALIPLATIN
     Indication: Rectal adenocarcinoma
     Dosage: UNK
     Route: 065
  2. CAPECITABINE [Suspect]
     Active Substance: CAPECITABINE
     Indication: Rectal adenocarcinoma
     Dosage: UNK
     Route: 065
  3. LEUCOVORIN [Suspect]
     Active Substance: LEUCOVORIN
     Indication: Rectal adenocarcinoma
     Dosage: UNK
     Route: 065
  4. FLUOROURACIL [Suspect]
     Active Substance: FLUOROURACIL
     Indication: Rectal adenocarcinoma
     Dosage: UNK
     Route: 065
  5. REGORAFENIB [Concomitant]
     Active Substance: REGORAFENIB
     Indication: Rectal adenocarcinoma
     Dosage: 160 MILLIGRAM, ON DAYS 1?21 OF A 28 DAY CYCLE
     Route: 048
  6. REGORAFENIB [Concomitant]
     Active Substance: REGORAFENIB
     Dosage: 80 MILLIGRAM, DAILY(REGORAFENIB WAS STOPPED IN 2015 AND 2020 UNTIL RESOLUTION)
     Route: 065
     Dates: start: 201401

REACTIONS (1)
  - Drug ineffective [Unknown]
